FAERS Safety Report 9001486 (Version 1)
Quarter: 2013Q1

REPORT INFORMATION
  Report Type: Spontaneous
  Country: US (occurrence: US)
  Receive Date: 20130107
  Receipt Date: 20130107
  Transmission Date: 20140127
  Serious: No
  Sender: FDA-Public Use
  Company Number: US-ASTRAZENECA-2012SE95642

PATIENT
  Age: 60 Year
  Sex: Female
  Weight: 81.6 kg

DRUGS (3)
  1. ATACAND HCT [Suspect]
     Indication: BLOOD PRESSURE
     Dosage: 32/12.5 MG , DAILY
     Route: 048
  2. ATACAND HCT [Suspect]
     Indication: BLOOD PRESSURE
     Dosage: 32/12.5 MG , DAILY,  ATACAND PLUS (CANADA)
     Route: 048
     Dates: start: 201212, end: 20121220
  3. ATACAND HCT [Suspect]
     Indication: BLOOD PRESSURE
     Dosage: 32/12.5 MG , DAILY
     Route: 048
     Dates: start: 20121220

REACTIONS (3)
  - Abdominal pain upper [Recovered/Resolved]
  - Food poisoning [Unknown]
  - Dizziness [Recovered/Resolved]
